FAERS Safety Report 19866309 (Version 1)
Quarter: 2021Q3

REPORT INFORMATION
  Report Type: Report from Study
  Country: US (occurrence: US)
  Receive Date: 20210921
  Receipt Date: 20210921
  Transmission Date: 20211014
  Serious: Yes (Other)
  Sender: FDA-Public Use
  Company Number: US-OTSUKA-2021_020600

PATIENT
  Age: 82 Year
  Sex: Male

DRUGS (1)
  1. CEDAZURIDINE AND DECITABINE [Suspect]
     Active Substance: CEDAZURIDINE\DECITABINE
     Indication: PLASMA CELL MYELOMA
     Dosage: 35?100 MG (35 MG DECITABINE AND 100 MG CEDAZURIDINE), QD ON DAYS 1?4 EVERY 42 HOURS
     Route: 048
     Dates: start: 20210531

REACTIONS (5)
  - Malignant melanoma [Unknown]
  - Product use in unapproved indication [Unknown]
  - Decreased activity [Unknown]
  - Mood swings [Unknown]
  - Product use issue [Unknown]

NARRATIVE: CASE EVENT DATE: 20210531
